FAERS Safety Report 6401425-5 (Version None)
Quarter: 2009Q4

REPORT INFORMATION
  Report Type: 
  Country: None (occurrence: None)
  Receive Date: 20091015
  Receipt Date: 20091012
  Transmission Date: 20100525
  Serious: No
  Sender: FDA-Public Use
  Company Number: US-B.I. PHARMACEUTICALS,INC./RIDGEFIELD-2009-BP-11936BP

PATIENT
  Age: 36 Year
  Sex: Female
  Weight: 70.31 kg

DRUGS (2)
  1. ZANTAC 150 [Suspect]
     Indication: DYSPEPSIA
     Dosage: 300 MG
     Route: 048
     Dates: start: 20091012
  2. UNSPECIFIED ALLERGY MEDICATION [Concomitant]
     Indication: HYPERSENSITIVITY
     Route: 045

REACTIONS (2)
  - CHEST PAIN [None]
  - ODYNOPHAGIA [None]
